FAERS Safety Report 16286463 (Version 1)
Quarter: 2019Q2

REPORT INFORMATION
  Report Type: Spontaneous
  Country: US (occurrence: US)
  Receive Date: 20190507
  Receipt Date: 20190507
  Transmission Date: 20190711
  Serious: No
  Sender: FDA-Public Use
  Company Number: None

PATIENT
  Age: 58 Year
  Sex: Female
  Weight: 112.5 kg

DRUGS (16)
  1. METFORMIN HCL [Concomitant]
     Active Substance: METFORMIN HYDROCHLORIDE
  2. ZESTRIL [Concomitant]
     Active Substance: LISINOPRIL
  3. GABAPENTIN. [Concomitant]
     Active Substance: GABAPENTIN
  4. PROBIOTIC [Concomitant]
     Active Substance: PROBIOTICS NOS
  5. JARDIANCE [Concomitant]
     Active Substance: EMPAGLIFLOZIN
  6. BASAGLAR [Concomitant]
     Active Substance: INSULIN GLARGINE
  7. TRULICITY [Suspect]
     Active Substance: DULAGLUTIDE
     Indication: BLOOD GLUCOSE INCREASED
     Dosage: ?          QUANTITY:1 INJECTION(S);OTHER FREQUENCY:WEEKLY;OTHER ROUTE:INJECTION?
  8. WOMEN^S MULTIVITAMIN [Concomitant]
  9. ZIAC [Concomitant]
     Active Substance: BISOPROLOL FUMARATE\HYDROCHLOROTHIAZIDE
  10. ARAVA [Concomitant]
     Active Substance: LEFLUNOMIDE
  11. LEFLUNOMIDE. [Concomitant]
     Active Substance: LEFLUNOMIDE
  12. VITAMIN D3 [Concomitant]
     Active Substance: CHOLECALCIFEROL
  13. DULOXETINE. [Concomitant]
     Active Substance: DULOXETINE
  14. PLAQUENIL [Concomitant]
     Active Substance: HYDROXYCHLOROQUINE SULFATE
  15. LASIX [Concomitant]
     Active Substance: FUROSEMIDE
  16. HEARTBURN + GAS ANTACID CHEWS [Concomitant]

REACTIONS (9)
  - Abnormal loss of weight [None]
  - Nausea [None]
  - Vomiting [None]
  - Constipation [None]
  - Abdominal distension [None]
  - Dehydration [None]
  - Feeding disorder [None]
  - Gastrooesophageal reflux disease [None]
  - Eructation [None]

NARRATIVE: CASE EVENT DATE: 20190428
